FAERS Safety Report 23874301 (Version 1)
Quarter: 2024Q2

REPORT INFORMATION
  Report Type: Spontaneous
  Country: CA (occurrence: CA)
  Receive Date: 20240520
  Receipt Date: 20240520
  Transmission Date: 20240716
  Serious: Yes (Hospitalization, Other)
  Sender: FDA-Public Use
  Company Number: CA-AKCEA THERAPEUTICS, INC.-2024IS004702

PATIENT

DRUGS (9)
  1. TEGSEDI [Suspect]
     Active Substance: INOTERSEN SODIUM
     Indication: Familial amyloidosis
     Dosage: 284 MILLIGRAM, QW
     Route: 058
     Dates: start: 20190211
  2. HERBALS\TURMERIC [Concomitant]
     Active Substance: HERBALS\TURMERIC
     Indication: Hereditary neuropathic amyloidosis
     Dosage: 1000 MILLIGRAM, QD
     Route: 048
  3. GREEN TEA LEAF [Concomitant]
     Active Substance: GREEN TEA LEAF
     Indication: Hereditary neuropathic amyloidosis
     Dosage: 700 MILLIGRAM, QD
     Route: 048
  4. VITAMINS [Concomitant]
     Active Substance: VITAMINS
     Indication: General symptom
     Dosage: 1 DOSAGE FORM
     Route: 048
  5. CODEINE [Concomitant]
     Active Substance: CODEINE
     Indication: Diarrhoea
     Dosage: 15 MILLIGRAM, QOD (UP TO 3-4 DOSES PER DAY PRN)
     Route: 048
  6. BISOPROLOL [Concomitant]
     Active Substance: BISOPROLOL\BISOPROLOL FUMARATE
     Indication: Cardiac disorder
     Dosage: 2.5 MILLIGRAM, QD
     Route: 048
  7. FUROSEMIDE [Concomitant]
     Active Substance: FUROSEMIDE
     Indication: Pulmonary oedema
     Dosage: 20 MILLIGRAM, QOD (OR DAILY PRN OR IF PATIENT HAS EPISODES OF DIFFICULTY BREATHING)
     Route: 048
  8. FUROSEMIDE [Concomitant]
     Active Substance: FUROSEMIDE
     Indication: Oedema
  9. AMITRIPTYLINE [Concomitant]
     Active Substance: AMITRIPTYLINE
     Indication: Amyloidosis
     Dosage: 25 MILLIGRAM, QD
     Route: 048

REACTIONS (20)
  - Cardiac failure congestive [Recovered/Resolved]
  - Chest discomfort [Recovered/Resolved]
  - Haemoglobin decreased [Recovered/Resolved]
  - Haematocrit decreased [Recovered/Resolved]
  - Red blood cell count decreased [Recovered/Resolved]
  - Lymphocyte count decreased [Not Recovered/Not Resolved]
  - Feeling abnormal [Not Recovered/Not Resolved]
  - Dysgeusia [Not Recovered/Not Resolved]
  - Weight increased [Not Recovered/Not Resolved]
  - Abdominal pain [Not Recovered/Not Resolved]
  - Abdominal distension [Not Recovered/Not Resolved]
  - Protein total decreased [Not Recovered/Not Resolved]
  - White blood cell count decreased [Not Recovered/Not Resolved]
  - Frequent bowel movements [Not Recovered/Not Resolved]
  - Red blood cell acanthocytes present [Not Recovered/Not Resolved]
  - Red blood cell burr cells present [Not Recovered/Not Resolved]
  - Peripheral swelling [Recovering/Resolving]
  - Contusion [Not Recovered/Not Resolved]
  - Thrombocytopenia [Not Recovered/Not Resolved]
  - Decreased appetite [Not Recovered/Not Resolved]

NARRATIVE: CASE EVENT DATE: 20190101
